FAERS Safety Report 9988854 (Version 2)
Quarter: 2014Q1

REPORT INFORMATION
  Report Type: Spontaneous
  Country: BR (occurrence: BR)
  Receive Date: 20140310
  Receipt Date: 20140310
  Transmission Date: 20141002
  Serious: Yes (Other)
  Sender: FDA-Public Use
  Company Number: BR-JNJFOC-20100108333

PATIENT
  Sex: Female
  Weight: 51 kg

DRUGS (3)
  1. EVRA [Suspect]
     Indication: CONTRACEPTION
     Dosage: ETHINYL ESTRADIOL 0.6MG/ NORELGESTROMIN 6MG
     Route: 062
     Dates: start: 2009
  2. EVRA [Suspect]
     Indication: POLYCYSTIC OVARIES
     Dosage: ETHINYL ESTRADIOL 0.6MG/ NORELGESTROMIN 6MG
     Route: 062
     Dates: start: 2009
  3. VITAMIN C [Concomitant]
     Indication: PRODUCT USED FOR UNKNOWN INDICATION
     Route: 065

REACTIONS (8)
  - Thyroid neoplasm [Unknown]
  - Application site erythema [Recovered/Resolved]
  - Nausea [Unknown]
  - Product quality issue [Unknown]
  - Application site pruritus [Recovered/Resolved]
  - Application site hypersensitivity [Recovered/Resolved]
  - Product quality issue [Unknown]
  - Off label use [Unknown]
